FAERS Safety Report 11694409 (Version 1)
Quarter: 2015Q4

REPORT INFORMATION
  Report Type: Report from Study
  Country: US (occurrence: US)
  Receive Date: 20151103
  Receipt Date: 20151103
  Transmission Date: 20160304
  Serious: Yes (Death, Hospitalization, Other)
  Sender: FDA-Public Use
  Company Number: US-TEVA-568764USA

PATIENT
  Sex: Male

DRUGS (2)
  1. CLOZAPINE. [Suspect]
     Active Substance: CLOZAPINE
     Indication: BIPOLAR DISORDER
     Route: 048
  2. METOPROLOL [Suspect]
     Active Substance: METOPROLOL
     Route: 065

REACTIONS (6)
  - Allergic myocarditis [Fatal]
  - Pyrexia [Unknown]
  - Tachypnoea [Unknown]
  - Pulmonary embolism [Unknown]
  - White blood cell count increased [Unknown]
  - Bacterial test positive [Unknown]
